FAERS Safety Report 6566973-6 (Version None)
Quarter: 2010Q1

REPORT INFORMATION
  Report Type: 
  Country: None (occurrence: None)
  Receive Date: 20100202
  Receipt Date: 20100125
  Transmission Date: 20100710
  Serious: Yes (Hospitalization, Other)
  Sender: FDA-Public Use
  Company Number: BR-SANOFI-AVENTIS-2010SA004955

PATIENT
  Sex: Male

DRUGS (7)
  1. LANTUS [Suspect]
     Route: 058
     Dates: start: 20090801
  2. SOLOSTAR [Suspect]
     Dates: start: 20090801
  3. ATENOLOL [Concomitant]
     Route: 048
     Dates: start: 20010101
  4. FINASTERIDE [Concomitant]
     Indication: PROSTATIC DISORDER
     Route: 048
     Dates: start: 20050101
  5. CILOSTAZOL [Concomitant]
     Route: 048
     Dates: start: 20090101
  6. CLOPIDOGREL [Concomitant]
     Indication: ANTICOAGULANT THERAPY
     Route: 048
     Dates: start: 20090101
  7. HYGROTON [Concomitant]
     Route: 048
     Dates: start: 20010101

REACTIONS (3)
  - HYPERGLYCAEMIA [None]
  - PERIPHERAL VASCULAR DISORDER [None]
  - PNEUMONIA [None]
